FAERS Safety Report 6188144-8 (Version None)
Quarter: 2009Q2

REPORT INFORMATION
  Report Type: 
  Country: None (occurrence: None)
  Receive Date: 20090513
  Receipt Date: 20080619
  Transmission Date: 20091009
  Serious: No
  Sender: FDA-Public Use
  Company Number: A0734154A

PATIENT
  Age: 60 Year
  Sex: Female

DRUGS (3)
  1. DYNACIRC CR [Suspect]
     Indication: HYPERTENSION
     Dosage: 10MG PER DAY
     Route: 048
     Dates: start: 20060101
  2. UNKNOWN MEDICATION [Concomitant]
  3. SYNTHROID [Concomitant]

REACTIONS (1)
  - OEDEMA PERIPHERAL [None]
